FAERS Safety Report 17246828 (Version 1)
Quarter: 2020Q1

REPORT INFORMATION
  Report Type: Spontaneous
  Country: US (occurrence: US)
  Receive Date: 20200108
  Receipt Date: 20200108
  Transmission Date: 20200409
  Serious: No
  Sender: FDA-Public Use
  Company Number: US-PFIZER INC-2020005657

PATIENT
  Age: 48 Year
  Sex: Female

DRUGS (1)
  1. CLINDAMYCIN PHOSPHATE. [Suspect]
     Active Substance: CLINDAMYCIN PHOSPHATE
     Indication: ALLERGY TEST
     Dosage: UNK (APPLIED TO LEFT SHOULDER AND COVERED WITH A PATCH FROM MONDAY TO WEDNESDAY)
     Dates: start: 20191202, end: 20191206

REACTIONS (1)
  - Urticaria [Unknown]
